FAERS Safety Report 14868449 (Version 1)
Quarter: 2018Q2

REPORT INFORMATION
  Report Type: Spontaneous
  Country: HR (occurrence: HR)
  Receive Date: 20180509
  Receipt Date: 20180509
  Transmission Date: 20180711
  Serious: Yes (Hospitalization)
  Sender: FDA-Public Use
  Company Number: HR-009507513-1805HRV000109

PATIENT
  Sex: Male

DRUGS (14)
  1. NITROGLYCERIN. [Concomitant]
     Active Substance: NITROGLYCERIN
     Dosage: UNK, PRN; FORMULATION: SPRAY
  2. ENVARSUS XR [Concomitant]
     Active Substance: TACROLIMUS
     Dosage: UNK, QW
  3. CELLCEPT [Concomitant]
     Active Substance: MYCOPHENOLATE MOFETIL\MYCOPHENOLATE MOFETIL HYDROCHLORIDE
     Dosage: 75 MG, BID
  4. CONTROLOC (PANTOPRAZOLE SODIUM) [Concomitant]
     Dosage: UNK
  5. NORPREXANIL [Concomitant]
     Active Substance: UNSPECIFIED INGREDIENT
     Dosage: UNK
  6. CYANOCOBALAMIN. [Concomitant]
     Active Substance: CYANOCOBALAMIN
     Dosage: UNK
  7. RETACRIT [Concomitant]
     Active Substance: EPOETIN ALFA-EPBX
     Dosage: 40000 I.J. ONCE A WEEK
  8. DIAPREL [Concomitant]
     Active Substance: GLICLAZIDE
     Dosage: UNK
  9. EDEMID [Concomitant]
     Active Substance: FUROSEMIDE
     Dosage: UNK
  10. DECORTIN [Concomitant]
     Active Substance: PREDNISONE
     Dosage: UNK
  11. SORBISTERIT [Concomitant]
     Dosage: UNK
  12. ZEPATIER [Suspect]
     Active Substance: ELBASVIR\GRAZOPREVIR
     Route: 048
  13. PHYSIOTENS [Concomitant]
     Active Substance: MOXONIDINE
     Dosage: UNK
  14. FOLACIN [Concomitant]
     Active Substance: FOLIC ACID
     Dosage: UNK

REACTIONS (2)
  - Malaise [Unknown]
  - Blood creatinine increased [Unknown]

NARRATIVE: CASE EVENT DATE: 20180405
